FAERS Safety Report 6119899-6 (Version None)
Quarter: 2009Q1

REPORT INFORMATION
  Report Type: 
  Country: None (occurrence: None)
  Receive Date: 20090311
  Receipt Date: 20090224
  Transmission Date: 20090719
  Serious: Yes (Hospitalization)
  Sender: FDA-Public Use
  Company Number: 8043717

PATIENT
  Age: 83 Year
  Sex: Female

DRUGS (6)
  1. KEPPRA [Suspect]
     Indication: EPILEPSY
     Dosage: 250 MG 2/D PO
     Route: 048
     Dates: start: 20080601, end: 20081025
  2. COZAAR [Suspect]
     Indication: HYPERTENSION
     Dates: start: 20081027
  3. PREVISCAN /00789001/ [Suspect]
     Indication: DEEP VEIN THROMBOSIS
     Dosage: 20 MG 1/D PO
     Route: 048
     Dates: start: 20080101, end: 20081025
  4. TRIVASTAL [Concomitant]
  5. EXELON [Concomitant]
  6. OSTRAM-VIT.D3 [Concomitant]

REACTIONS (4)
  - ALTERED STATE OF CONSCIOUSNESS [None]
  - CYTOLYTIC HEPATITIS [None]
  - DEHYDRATION [None]
  - RENAL FAILURE ACUTE [None]
